FAERS Safety Report 24316852 (Version 1)
Quarter: 2024Q3

REPORT INFORMATION
  Report Type: Report from Study
  Country: US (occurrence: US)
  Receive Date: 20240913
  Receipt Date: 20240913
  Transmission Date: 20241016
  Serious: Yes (Other)
  Sender: ALNYLAM PHARMACEUTICALS
  Company Number: US-ALNYLAM PHARMACEUTICALS, INC.-ALN-2024-005056

PATIENT

DRUGS (1)
  1. AMVUTTRA [Suspect]
     Active Substance: VUTRISIRAN
     Indication: Hereditary neuropathic amyloidosis
     Dosage: UNK
     Route: 065
     Dates: start: 20230207, end: 20230207

REACTIONS (7)
  - Mental impairment [Unknown]
  - Hallucination [Unknown]
  - Heat stroke [Recovered/Resolved]
  - Agitation [Unknown]
  - Ill-defined disorder [Unknown]
  - Constipation [Unknown]
  - Urinary tract infection [Unknown]
